FAERS Safety Report 8859215 (Version 2)
Quarter: 2012Q4

REPORT INFORMATION
  Report Type: Spontaneous
  Country: GB (occurrence: None)
  Receive Date: 20121023
  Receipt Date: 20121226
  Transmission Date: 20130627
  Serious: Yes (Other)
  Sender: FDA-Public Use
  Company Number: HRA-CDB20120282

PATIENT
  Sex: Female

DRUGS (2)
  1. ELLAONE [Suspect]
     Indication: POST COITAL CONTRACEPTION
     Route: 048
     Dates: start: 20120813, end: 20120813
  2. MERCILON [Suspect]
     Indication: CONTRACEPTION
     Dates: start: 20120813

REACTIONS (2)
  - Unintended pregnancy [None]
  - Pregnancy after post coital contraception [None]
